FAERS Safety Report 14609377 (Version 2)
Quarter: 2018Q2

REPORT INFORMATION
  Report Type: Report from Study
  Country: JP (occurrence: JP)
  Receive Date: 20180307
  Receipt Date: 20180430
  Transmission Date: 20180711
  Serious: Yes (Other)
  Sender: FDA-Public Use
  Company Number: JP-COLLEGIUM PHARMACEUTICAL, INC.-JP-2018DEP000588

PATIENT
  Age: 71 Year
  Sex: Male
  Weight: 43 kg

DRUGS (21)
  1. TAPENTADOL HYDROCHLORIDE [Suspect]
     Active Substance: TAPENTADOL HYDROCHLORIDE
     Indication: CANCER PAIN
     Dosage: 50 MG, BID
     Route: 048
     Dates: start: 20161219, end: 20161220
  2. TRAMAL [Concomitant]
     Active Substance: TRAMADOL
     Indication: CANCER PAIN
     Dosage: UNK
     Dates: start: 20161215, end: 20161218
  3. TAPENTADOL HYDROCHLORIDE [Suspect]
     Active Substance: TAPENTADOL HYDROCHLORIDE
     Dosage: 25 MG, BID
     Route: 048
     Dates: start: 20170303
  4. MAGNESIUM OXIDE. [Concomitant]
     Active Substance: MAGNESIUM OXIDE
     Indication: CONSTIPATION
     Dosage: UNK
  5. LUNESTA [Concomitant]
     Active Substance: ESZOPICLONE
     Indication: INSOMNIA
     Dosage: UNK
     Dates: start: 20161214, end: 20170202
  6. QUETIAPINE. [Concomitant]
     Active Substance: QUETIAPINE
     Indication: DELIRIUM
     Dosage: UNK
     Dates: start: 20161221, end: 20170202
  7. LYRICA [Concomitant]
     Active Substance: PREGABALIN
     Dosage: UNK
     Dates: start: 20170203, end: 20170216
  8. TAPENTADOL HYDROCHLORIDE [Suspect]
     Active Substance: TAPENTADOL HYDROCHLORIDE
     Dosage: 25 MG, BID
     Route: 048
     Dates: start: 20161221, end: 20170216
  9. TRAMAL [Concomitant]
     Active Substance: TRAMADOL
     Dosage: UNK
     Dates: start: 20161219, end: 20170110
  10. LYRICA [Concomitant]
     Active Substance: PREGABALIN
     Indication: BACK PAIN
     Dosage: UNK
     Dates: start: 20170106, end: 20170119
  11. QUETIAPINE. [Concomitant]
     Active Substance: QUETIAPINE
     Indication: DEPRESSION
     Dosage: UNK
     Dates: start: 20161213, end: 20161220
  12. REMERON [Concomitant]
     Active Substance: MIRTAZAPINE
     Dosage: UNK
     Dates: start: 20161226
  13. CALONAL [Concomitant]
     Active Substance: ACETAMINOPHEN
     Indication: CANCER PAIN
     Dosage: UNK
     Dates: start: 20161213
  14. TAPENTADOL HYDROCHLORIDE [Suspect]
     Active Substance: TAPENTADOL HYDROCHLORIDE
     Dosage: 25 MG, QD
     Route: 048
     Dates: start: 20170217, end: 20170302
  15. REMERON [Concomitant]
     Active Substance: MIRTAZAPINE
     Indication: DEPRESSION
     Dosage: UNK
     Dates: end: 20161218
  16. QUETIAPINE. [Concomitant]
     Active Substance: QUETIAPINE
     Dosage: UNK
     Dates: start: 20170203
  17. HIRUDOID [Concomitant]
     Active Substance: GLYCOSAMINOGLYCANS
     Indication: ECZEMA ASTEATOTIC
     Dosage: UNK
     Dates: end: 20170303
  18. GABAPEN [Concomitant]
     Active Substance: GABAPENTIN
     Indication: BACK PAIN
     Dosage: UNK
     Dates: start: 20170217, end: 20170316
  19. QUETIAPINE. [Concomitant]
     Active Substance: QUETIAPINE
     Dosage: UNK
     Dates: start: 20170217
  20. LEUPLIN [Concomitant]
     Active Substance: LEUPROLIDE ACETATE
     Indication: PROSTATE CANCER
     Dosage: UNK
  21. LYRICA [Concomitant]
     Active Substance: PREGABALIN
     Dosage: UNK
     Dates: start: 20170120, end: 20170202

REACTIONS (2)
  - Delirium [Recovered/Resolved]
  - Back pain [Recovered/Resolved]

NARRATIVE: CASE EVENT DATE: 20161221
